FAERS Safety Report 6549106-1 (Version None)
Quarter: 2010Q1

REPORT INFORMATION
  Report Type: 
  Country: None (occurrence: None)
  Receive Date: 20100119
  Receipt Date: 20100108
  Transmission Date: 20100710
  Serious: Yes (Hospitalization)
  Sender: FDA-Public Use
  Company Number: 2010SP002765

PATIENT
  Age: 67 Year
  Sex: Male
  Weight: 71 kg

DRUGS (3)
  1. TEMOZOLOMIDE [Suspect]
     Indication: METASTATIC MALIGNANT MELANOMA
     Dosage: ; PO
     Route: 048
     Dates: start: 20091203
  2. PLACEBO (PLACEBO) [Suspect]
     Indication: METASTATIC MALIGNANT MELANOMA
     Dosage: 2 DF; QD; PO
     Route: 048
     Dates: start: 20091203
  3. TRAMADOL [Concomitant]

REACTIONS (4)
  - LIP SWELLING [None]
  - NAUSEA [None]
  - SWOLLEN TONGUE [None]
  - VOMITING [None]
